FAERS Safety Report 8947052 (Version 1)
Quarter: 2012Q4

REPORT INFORMATION
  Report Type: 
  Country: US (occurrence: US)
  Receive Date: 20121205
  Receipt Date: 20121205
  Transmission Date: 20130627
  Serious: Yes (Other)
  Sender: FDA-Public Use
  Company Number: US-JNJFOC-20121114589

PATIENT
  Age: 47 Year
  Sex: Female
  Weight: 87.09 kg

DRUGS (1)
  1. REMICADE [Suspect]
     Indication: CROHN^S DISEASE
     Route: 042
     Dates: end: 201110

REACTIONS (1)
  - B-cell lymphoma [Unknown]
